FAERS Safety Report 7439521-6 (Version None)
Quarter: 2011Q2

REPORT INFORMATION
  Report Type: 
  Country: None (occurrence: None)
  Receive Date: 20110427
  Receipt Date: 20110418
  Transmission Date: 20111010
  Serious: Yes (Other)
  Sender: FDA-Public Use
  Company Number: ES-BRISTOL-MYERS SQUIBB COMPANY-15679574

PATIENT
  Age: 10 Year
  Sex: Male

DRUGS (3)
  1. THIOTEPA [Suspect]
     Route: 042
     Dates: start: 20101118, end: 20101120
  2. CARBOPLATIN [Suspect]
     Route: 042
     Dates: start: 20101115, end: 20101117
  3. VEPESID [Suspect]
     Route: 042
     Dates: start: 20101118, end: 20101120

REACTIONS (1)
  - TOXIC SKIN ERUPTION [None]
